FAERS Safety Report 7951890-7 (Version None)
Quarter: 2011Q4

REPORT INFORMATION
  Report Type: 
  Country: None (occurrence: None)
  Receive Date: 20111201
  Receipt Date: 20111201
  Transmission Date: 20120403
  Serious: Yes (Death)
  Sender: FDA-Public Use
  Company Number: None

PATIENT
  Sex: Male
  Weight: 65.77 kg

DRUGS (1)
  1. GENETICALLY MODIFIED T CELLS [Suspect]
     Indication: ACUTE MYELOID LEUKAEMIA
     Dosage: 9.17 X 10^6 TRANSDUCED T CELLS
     Route: 042
     Dates: start: 20110906, end: 20110906

REACTIONS (4)
  - SEPSIS [None]
  - RESPIRATORY FAILURE [None]
  - PNEUMONIA [None]
  - CYTOMEGALOVIRUS INFECTION [None]
